FAERS Safety Report 5638373-4 (Version None)
Quarter: 2008Q1

REPORT INFORMATION
  Report Type: 
  Country: None (occurrence: None)
  Receive Date: 20080222
  Receipt Date: 20080215
  Transmission Date: 20080703
  Serious: Yes (Other)
  Sender: FDA-Public Use
  Company Number: 18388

PATIENT
  Age: 74 Year
  Sex: Female
  Weight: 65 kg

DRUGS (10)
  1. PACLITAXEL [Suspect]
     Indication: OVARIAN CANCER
     Dates: start: 20071216, end: 20080116
  2. CARBOPLATIN [Concomitant]
  3. DEXAMETHASONE TAB [Concomitant]
  4. ONDANSETRON [Concomitant]
  5. RANITIDINE [Concomitant]
  6. CLEMASTINE FUMARATE [Concomitant]
  7. FUROSEMIDE [Concomitant]
  8. AMINOPHYLLIN [Concomitant]
  9. LORAZEPAM [Concomitant]
  10. OXYGEN [Concomitant]

REACTIONS (5)
  - BLOOD PRESSURE DECREASED [None]
  - CYANOSIS [None]
  - DYSPNOEA [None]
  - HYPERHIDROSIS [None]
  - URINARY INCONTINENCE [None]
